FAERS Safety Report 14980043 (Version 1)
Quarter: 2018Q2

REPORT INFORMATION
  Report Type: Spontaneous
  Country: US (occurrence: US)
  Receive Date: 20180516
  Receipt Date: 20180516
  Transmission Date: 20180711
  Serious: No
  Sender: FDA-Public Use
  Company Number: None

PATIENT
  Age: 46 Year
  Sex: Female
  Weight: 81 kg

DRUGS (2)
  1. VENTOLIN [Concomitant]
     Active Substance: ALBUTEROL SULFATE
  2. REMICADE [Suspect]
     Active Substance: INFLIXIMAB
     Indication: COLITIS ULCERATIVE
     Dosage: ?          QUANTITY:1 ONE BAG DRIP;OTHER FREQUENCY:2X MONTH;?
     Route: 042
     Dates: start: 20180409

REACTIONS (1)
  - Alopecia [None]

NARRATIVE: CASE EVENT DATE: 20180409
